FAERS Safety Report 11874649 (Version 1)
Quarter: 2015Q4

REPORT INFORMATION
  Report Type: Spontaneous
  Country: US (occurrence: None)
  Receive Date: 20151228
  Receipt Date: 20151228
  Transmission Date: 20160305
  Serious: Yes (Death)
  Sender: FDA-Public Use
  Company Number: None

PATIENT
  Age: 62 Year
  Sex: Male
  Weight: 52.4 kg

DRUGS (1)
  1. TEMOZOLOMIDE. [Suspect]
     Active Substance: TEMOZOLOMIDE
     Dates: end: 20151204

REACTIONS (9)
  - Blood alkaline phosphatase increased [None]
  - Alanine aminotransferase increased [None]
  - Abdominal pain upper [None]
  - Blood bilirubin increased [None]
  - Blood lactate dehydrogenase increased [None]
  - Fatigue [None]
  - Asthenia [None]
  - Aspartate aminotransferase increased [None]
  - Liver palpable [None]

NARRATIVE: CASE EVENT DATE: 20151220
